FAERS Safety Report 7163294-8 (Version None)
Quarter: 2010Q4

REPORT INFORMATION
  Report Type: 
  Country: None (occurrence: None)
  Receive Date: 20101201
  Receipt Date: 20101118
  Transmission Date: 20110411
  Serious: Yes (Hospitalization, Other)
  Sender: FDA-Public Use
  Company Number: ACO_20512_2010

PATIENT
  Age: 66 Year
  Sex: Female
  Weight: 81.6 kg

DRUGS (15)
  1. AMPYRA [Suspect]
     Indication: MOBILITY DECREASED
     Dosage: 10 MG, BID, ORAL
     Route: 048
     Dates: start: 20100921
  2. AMPYRA [Suspect]
     Indication: MULTIPLE SCLEROSIS
     Dosage: 10 MG, BID, ORAL
     Route: 048
     Dates: start: 20100921
  3. COPAXONE [Concomitant]
  4. BONIVA [Concomitant]
  5. COUMADIN [Concomitant]
  6. NEURONTIN [Concomitant]
  7. NITROFURANTOIN [Concomitant]
  8. PAXIL [Concomitant]
  9. DEXTROMETHORPHAN HYDROBROMIDE [Concomitant]
  10. BOTOX (BOTULINUM TOIXN TYPE A) [Concomitant]
  11. PROTONIX [Concomitant]
  12. PROVIGIL [Concomitant]
  13. MIRALAX [Concomitant]
  14. VITAMIN C (ASCORBICI ACID) [Concomitant]
  15. MULTIVITAMIN [Concomitant]

REACTIONS (4)
  - CONTUSION [None]
  - FALL [None]
  - INAPPROPRIATE SCHEDULE OF DRUG ADMINISTRATION [None]
  - MULTIPLE SCLEROSIS RELAPSE [None]
